FAERS Safety Report 10996209 (Version 1)
Quarter: 2015Q2

REPORT INFORMATION
  Report Type: Spontaneous
  Country: US (occurrence: US)
  Receive Date: 20150408
  Receipt Date: 20150408
  Transmission Date: 20150821
  Serious: No
  Sender: FDA-Public Use
  Company Number: US-ASTRAZENECA-2015SE29426

PATIENT
  Age: 41 Year
  Sex: Male
  Weight: 111 kg

DRUGS (3)
  1. OMEPRAZOLE. [Suspect]
     Active Substance: OMEPRAZOLE
     Route: 048
  2. EMERGEN-C [Suspect]
     Active Substance: VITAMINS
     Indication: MALAISE
     Dosage: TOOK 4 DOSES OVER A 16 HOUR PERIOD
     Route: 065
     Dates: start: 20150323, end: 20150323
  3. FLUOXETINE [Suspect]
     Active Substance: FLUOXETINE\FLUOXETINE HYDROCHLORIDE
     Route: 065

REACTIONS (12)
  - Intentional product misuse [Unknown]
  - Drug dose omission [Unknown]
  - Vomiting [Recovered/Resolved with Sequelae]
  - Nausea [Unknown]
  - Drug ineffective [Unknown]
  - Malaise [Not Recovered/Not Resolved]
  - Nasopharyngitis [Unknown]
  - Nasal congestion [Unknown]
  - Face injury [Unknown]
  - Feeling abnormal [Unknown]
  - Fall [Unknown]
  - Dizziness [Unknown]

NARRATIVE: CASE EVENT DATE: 20150323
